FAERS Safety Report 9885709 (Version 2)
Quarter: 2014Q1

REPORT INFORMATION
  Report Type: Spontaneous
  Country: DK (occurrence: DK)
  Receive Date: 20140210
  Receipt Date: 20140217
  Transmission Date: 20141002
  Serious: Yes (Hospitalization)
  Sender: FDA-Public Use
  Company Number: DK-AMGEN-DNKSP2014008312

PATIENT
  Age: 65 Year
  Sex: Female

DRUGS (1)
  1. NEUPOGEN [Suspect]
     Indication: HAEMATOPOIETIC STEM CELL MOBILISATION
     Dosage: 0.96 MG/ML, UNK (0.5 ML/SYRINGE)
     Route: 065

REACTIONS (1)
  - Underdose [Unknown]
